FAERS Safety Report 8844944 (Version 1)
Quarter: 2012Q4

REPORT INFORMATION
  Report Type: 
  Country: BR (occurrence: BR)
  Receive Date: 20121017
  Receipt Date: 20121017
  Transmission Date: 20130627
  Serious: Yes (Hospitalization, Other)
  Sender: FDA-Public Use
  Company Number: PHHY2012BR088310

PATIENT
  Sex: Male
  Weight: 70 kg

DRUGS (8)
  1. STALEVO [Suspect]
     Indication: PARKINSON^S DISEASE
     Dosage: 200/50/12.5 mg,three tablet daily, one at 08:00 am, 01:00 pm and 06:00 pm
     Route: 048
  2. STALEVO [Suspect]
     Dosage: 200/100/25 mg, three times a day
     Route: 048
  3. STALEVO [Suspect]
     Dosage: 200/100/25 mg, four times a day
     Route: 048
  4. SYNTHROID [Concomitant]
     Indication: HYPOTHYROIDISM
     Dosage: 1 DF, Daily under fasting
     Route: 048
  5. PANTOPRAZOLE [Concomitant]
     Indication: GASTRIC DISORDER
     Dosage: 1 DF, Daily
     Route: 048
  6. CLOPIDOGREL [Concomitant]
     Indication: ISCHAEMIA
     Dosage: 1 DF, Daily
     Route: 048
  7. AMIODARONE [Concomitant]
     Indication: ARRHYTHMIA
     Dosage: 1 DF, Daily
     Route: 048
  8. ATORVASTATIN [Concomitant]
     Indication: ANTIINFLAMMATORY THERAPY
     Dosage: 1 DF, Daily
     Route: 048

REACTIONS (5)
  - Ischaemic stroke [Unknown]
  - Choking [Not Recovered/Not Resolved]
  - Gait disturbance [Not Recovered/Not Resolved]
  - Dysphagia [Not Recovered/Not Resolved]
  - Wrong technique in drug usage process [Unknown]
